FAERS Safety Report 26191761 (Version 1)
Quarter: 2025Q4

REPORT INFORMATION
  Report Type: Spontaneous
  Country: US (occurrence: US)
  Receive Date: 20251223
  Receipt Date: 20251223
  Transmission Date: 20260118
  Serious: Yes (Other)
  Sender: INSUD PHARMA
  Company Number: US-EXELTIS PHARMACEUTICAL HOLDING, S.L.-2512US10688

PATIENT

DRUGS (3)
  1. PROGESTERONE [Suspect]
     Active Substance: PROGESTERONE
     Indication: Amenorrhoea
     Dosage: 1 CAPSULE IN THE EVENING, SINGLE DOSE
     Route: 048
     Dates: start: 202511, end: 202511
  2. DEXAMETHASONE [Concomitant]
     Active Substance: DEXAMETHASONE
     Indication: Oral lichen planus
     Dosage: 0.5 MILLIGRAM
  3. CLOBETASOL [Concomitant]
     Active Substance: CLOBETASOL
     Indication: Anogenital lichen planus

REACTIONS (9)
  - Paralysis [Recovering/Resolving]
  - Depressed level of consciousness [Recovering/Resolving]
  - Dysarthria [Recovering/Resolving]
  - Noninfective encephalitis [Recovering/Resolving]
  - Brain oedema [Recovering/Resolving]
  - Head discomfort [Recovering/Resolving]
  - Sensory loss [Recovering/Resolving]
  - Headache [Recovering/Resolving]
  - Intentional product use issue [Unknown]

NARRATIVE: CASE EVENT DATE: 20251101
